FAERS Safety Report 19818701 (Version 1)
Quarter: 2021Q3

REPORT INFORMATION
  Report Type: Spontaneous
  Country: CA (occurrence: CA)
  Receive Date: 20210912
  Receipt Date: 20210912
  Transmission Date: 20211014
  Serious: Yes (Hospitalization)
  Sender: FDA-Public Use
  Company Number: CA-TEVA-2021-CA-1950953

PATIENT
  Age: 57 Year
  Sex: Male
  Weight: 70 kg

DRUGS (10)
  1. CARBOPLATIN INJECTION [Suspect]
     Active Substance: CARBOPLATIN
     Indication: LUNG NEOPLASM
     Route: 042
  2. CALCIUM [Concomitant]
     Active Substance: CALCIUM
  3. FOLIC ACID. [Concomitant]
     Active Substance: FOLIC ACID
  4. VITAMIN D [Concomitant]
     Active Substance: VITAMIN D NOS
  5. LORAZEPAM. [Concomitant]
     Active Substance: LORAZEPAM
  6. MORPHINE SR [Concomitant]
     Active Substance: MORPHINE
  7. KEYTRUDA [Concomitant]
     Active Substance: PEMBROLIZUMAB
  8. PREGABALIN. [Concomitant]
     Active Substance: PREGABALIN
  9. PEMETREXED DISODIUM FOR INJECTION [Suspect]
     Active Substance: PEMETREXED DISODIUM
     Indication: LUNG NEOPLASM
     Route: 042
  10. VITAMIN B12 [Concomitant]
     Active Substance: CYANOCOBALAMIN

REACTIONS (1)
  - Febrile neutropenia [Recovered/Resolved]
